FAERS Safety Report 4305716-3 (Version None)
Quarter: 2004Q1

REPORT INFORMATION
  Report Type: 
  Country: None (occurrence: None)
  Receive Date: 20040225
  Receipt Date: 20040213
  Transmission Date: 20041129
  Serious: Yes (Death)
  Sender: FDA-Public Use
  Company Number: 163-20785-03120029

PATIENT
  Age: 77 Year
  Sex: Male

DRUGS (16)
  1. THALOMID [Suspect]
     Indication: MYELODYSPLASTIC SYNDROME
     Dosage: 100 MG, QHS, ORAL
     Route: 048
     Dates: start: 20030827, end: 20030924
  2. DIGOXIN [Concomitant]
  3. PACERONE [Concomitant]
  4. NORVASC [Concomitant]
  5. COUMADIN [Concomitant]
  6. IMDUR [Concomitant]
  7. ULTRAM [Concomitant]
  8. GLUCOTROL [Concomitant]
  9. AZMACORT [Concomitant]
  10. ALBUTEROL [Concomitant]
  11. PRILOSEC [Concomitant]
  12. DEMADEX [Concomitant]
  13. VICODIN [Concomitant]
  14. ALLOPURINOL [Concomitant]
  15. KLOR-CON [Concomitant]
  16. DOBUTAMINE (DOBUTAMINE) [Concomitant]

REACTIONS (3)
  - CONSTIPATION [None]
  - DIZZINESS [None]
  - FATIGUE [None]
